FAERS Safety Report 5323426-0 (Version None)
Quarter: 2007Q2

REPORT INFORMATION
  Report Type: 
  Country: None (occurrence: None)
  Receive Date: 20070514
  Receipt Date: 20070504
  Transmission Date: 20071010
  Serious: Yes (Hospitalization, Other)
  Sender: FDA-Public Use
  Company Number: PHFR2007GB01413

PATIENT
  Age: 44 Year
  Sex: Male
  Weight: 103 kg

DRUGS (8)
  1. CLOZARIL [Suspect]
     Indication: SCHIZOPHRENIA
     Dosage: 400MG/DAY
     Route: 065
     Dates: start: 20040617
  2. VALPROATE SODIUM [Concomitant]
     Indication: SCHIZOAFFECTIVE DISORDER
     Dosage: 2.5MG/DAY
     Route: 065
     Dates: start: 20061001
  3. HALOPERIDOL [Concomitant]
     Route: 065
  4. ARIPIPRAZOLE [Concomitant]
     Indication: SCHIZOPHRENIA
     Dosage: 25MG/DAY
     Route: 065
     Dates: start: 20061101
  5. OMEPRAZOLE [Concomitant]
     Indication: GASTROOESOPHAGEAL REFLUX DISEASE
     Dosage: 40MG/DAY
     Route: 048
     Dates: start: 20060501
  6. INSULIN MIXTARD [Concomitant]
     Indication: DIABETES MELLITUS
     Dosage: 28 UNITS
     Route: 058
     Dates: start: 20060101
  7. HYOSCINE HBR HYT [Concomitant]
     Indication: SALIVARY HYPERSECRETION
     Dosage: 900UG/DAY
     Route: 048
     Dates: start: 20060101
  8. MOVICOL [Concomitant]
     Indication: CONSTIPATION
     Dosage: 1 SACHET
     Route: 048
     Dates: start: 20060101

REACTIONS (20)
  - AMMONIA INCREASED [None]
  - BLOOD CREATINE PHOSPHOKINASE INCREASED [None]
  - BLOOD GLUCOSE INCREASED [None]
  - BLOOD OSMOLARITY INCREASED [None]
  - BLOOD POTASSIUM DECREASED [None]
  - BLOOD UREA INCREASED [None]
  - C-REACTIVE PROTEIN INCREASED [None]
  - DEPRESSED LEVEL OF CONSCIOUSNESS [None]
  - DRUG LEVEL INCREASED [None]
  - ENCEPHALOPATHY [None]
  - GAMMA-GLUTAMYLTRANSFERASE DECREASED [None]
  - HAEMATOCRIT DECREASED [None]
  - HAEMOGLOBIN DECREASED [None]
  - INFECTION [None]
  - LIVER FUNCTION TEST ABNORMAL [None]
  - MEAN CELL HAEMOGLOBIN [None]
  - METABOLIC DISORDER [None]
  - PLATELET COUNT DECREASED [None]
  - RED BLOOD CELL COUNT DECREASED [None]
  - SOMNOLENCE [None]
